FAERS Safety Report 7191337-4 (Version None)
Quarter: 2010Q4

REPORT INFORMATION
  Report Type: 
  Country: None (occurrence: None)
  Receive Date: 20101223
  Receipt Date: 20101217
  Transmission Date: 20110411
  Serious: Yes (Other)
  Sender: FDA-Public Use
  Company Number: GB-ROCHE-749273

PATIENT
  Age: 57 Year
  Sex: Female
  Weight: 67 kg

DRUGS (7)
  1. TOCILIZUMAB [Suspect]
     Route: 042
     Dates: start: 20100531
  2. CO-CODAMOL [Concomitant]
  3. FOLIC ACID [Concomitant]
  4. LEVOTHYROXINE SODIUM [Concomitant]
  5. MELOXICAM [Concomitant]
  6. METHOTREXATE [Concomitant]
  7. SIMVASTATIN [Concomitant]

REACTIONS (2)
  - RHEUMATOID ARTHRITIS [None]
  - VASCULITIS [None]
